FAERS Safety Report 9513943 (Version 2)
Quarter: 2013Q3

REPORT INFORMATION
  Report Type: Report from Study
  Country: US (occurrence: US)
  Receive Date: 20130910
  Receipt Date: 20130917
  Transmission Date: 20140515
  Serious: Yes (Hospitalization, Other)
  Sender: FDA-Public Use
  Company Number: US-TAKEDA-2013TUS000115

PATIENT
  Sex: 0

DRUGS (1)
  1. ULORIC [Suspect]
     Indication: HYPERURICAEMIA

REACTIONS (1)
  - Haemorrhage [Recovered/Resolved]
